FAERS Safety Report 6075936-9 (Version None)
Quarter: 2009Q1

REPORT INFORMATION
  Report Type: 
  Country: None (occurrence: None)
  Receive Date: 20090212
  Receipt Date: 20090202
  Transmission Date: 20090719
  Serious: Yes (Death)
  Sender: FDA-Public Use
  Company Number: AU-PFIZER INC-2009164564

PATIENT

DRUGS (1)
  1. SUTENT [Suspect]
     Indication: RENAL CELL CARCINOMA

REACTIONS (1)
  - DEATH [None]
